FAERS Safety Report 25649039 (Version 1)
Quarter: 2025Q3

REPORT INFORMATION
  Report Type: Spontaneous
  Country: CA (occurrence: CA)
  Receive Date: 20250806
  Receipt Date: 20250806
  Transmission Date: 20251021
  Serious: Yes (Disabling, Other)
  Sender: ACCORD
  Company Number: CA-MLMSERVICE-20250722-PI582255-00101-2

PATIENT
  Age: 3 Year
  Sex: Female

DRUGS (16)
  1. CARBOPLATIN [Suspect]
     Active Substance: CARBOPLATIN
     Indication: Neoplasm malignant
  2. CISPLATIN [Suspect]
     Active Substance: CISPLATIN
     Indication: Neoplasm malignant
  3. ETOPOSIDE [Suspect]
     Active Substance: ETOPOSIDE
     Indication: Neoplasm malignant
  4. IRINOTECAN [Suspect]
     Active Substance: IRINOTECAN
     Indication: Neoplasm malignant
  5. CYCLOPHOSPHAMIDE [Suspect]
     Active Substance: CYCLOPHOSPHAMIDE
     Indication: Neoplasm malignant
  6. DACTINOMYCIN [Suspect]
     Active Substance: DACTINOMYCIN
     Indication: Neoplasm malignant
  7. THIOTEPA [Suspect]
     Active Substance: THIOTEPA
     Indication: Neoplasm malignant
  8. VINCRISTINE [Suspect]
     Active Substance: VINCRISTINE
     Indication: Neoplasm malignant
  9. THIOTEPA [Suspect]
     Active Substance: THIOTEPA
     Indication: Brain neoplasm
  10. CISPLATIN [Suspect]
     Active Substance: CISPLATIN
     Indication: Brain neoplasm
  11. ETOPOSIDE [Suspect]
     Active Substance: ETOPOSIDE
     Indication: Brain neoplasm
  12. CARBOPLATIN [Suspect]
     Active Substance: CARBOPLATIN
     Indication: Brain neoplasm
  13. VINCRISTINE [Suspect]
     Active Substance: VINCRISTINE
     Indication: Brain neoplasm
  14. DACTINOMYCIN [Suspect]
     Active Substance: DACTINOMYCIN
     Indication: Brain neoplasm
  15. CYCLOPHOSPHAMIDE [Suspect]
     Active Substance: CYCLOPHOSPHAMIDE
     Indication: Brain neoplasm
  16. IRINOTECAN [Suspect]
     Active Substance: IRINOTECAN
     Indication: Brain neoplasm

REACTIONS (8)
  - Febrile neutropenia [Unknown]
  - Deafness [Unknown]
  - Astigmatism [Unknown]
  - Anisometropia [Unknown]
  - Optic atrophy [Unknown]
  - Trismus [Unknown]
  - Eustachian tube dysfunction [Unknown]
  - Off label use [Unknown]
